FAERS Safety Report 4843545-2 (Version None)
Quarter: 2005Q4

REPORT INFORMATION
  Report Type: 
  Country: None (occurrence: None)
  Receive Date: 20051129
  Receipt Date: 20051116
  Transmission Date: 20060501
  Serious: Yes (Hospitalization)
  Sender: FDA-Public Use
  Company Number: FR_051107436

PATIENT
  Age: 75 Year
  Sex: Female

DRUGS (9)
  1. FORTEO [Suspect]
     Indication: OSTEOPOROSIS
     Dosage: 20 UG, DAILY (1/D), SUBCUTANEOUS
     Route: 058
     Dates: start: 20050717, end: 20050923
  2. CRESTOR [Concomitant]
  3. TEMESTA              (LORAZEPAM) [Concomitant]
  4. LEXOMIL                     (BROMAZEPAM) [Concomitant]
  5. ASPEGIC 325 [Concomitant]
  6. DI-ANTALVIC [Concomitant]
  7. CACIT  D3 [Concomitant]
  8. CHONDROSULF          (CHONDROITIN SULFATE SODIUM) [Concomitant]
  9. FORTEO PEN, 250MCG/ML(3ML) [Concomitant]

REACTIONS (5)
  - HEPATITIS [None]
  - HEPATOCELLULAR DAMAGE [None]
  - HYPERHIDROSIS [None]
  - PALPITATIONS [None]
  - SPUTUM DISCOLOURED [None]
